FAERS Safety Report 23687583 (Version 4)
Quarter: 2024Q2

REPORT INFORMATION
  Report Type: Spontaneous
  Country: US (occurrence: US)
  Receive Date: 20240329
  Receipt Date: 20240426
  Transmission Date: 20240716
  Serious: Yes (Other)
  Sender: FDA-Public Use
  Company Number: US-LUPIN PHARMACEUTICALS INC.-2024-02310

PATIENT

DRUGS (3)
  1. AMLODIPINE BESYLATE [Suspect]
     Active Substance: AMLODIPINE BESYLATE
     Indication: Blood pressure abnormal
     Dosage: 1 DOSAGE FORM, QD (1 TABLET ONCE DAILY BY MOUTH)
     Route: 048
     Dates: start: 20240309, end: 20240311
  2. BENICAR [Concomitant]
     Active Substance: OLMESARTAN MEDOXOMIL
     Indication: Blood pressure abnormal
     Dosage: 1 DOSAGE FORM, QD 9 1 TABLET ONCE DAILY BY MOUTH)
     Route: 048
  3. TADALAFIL [Concomitant]
     Active Substance: TADALAFIL
     Indication: Prostatic disorder
     Dosage: 1 DOSAGE FORM, QD ( 1 TABLET ONCE DAILY BY MOUTH)
     Route: 048

REACTIONS (1)
  - Drug ineffective [Unknown]
